FAERS Safety Report 8339032-X (Version None)
Quarter: 2012Q2

REPORT INFORMATION
  Report Type: 
  Country: None (occurrence: None)
  Receive Date: 20120502
  Receipt Date: 20120417
  Transmission Date: 20120825
  Serious: Yes (Hospitalization)
  Sender: FDA-Public Use
  Company Number: DSU-2012-03037

PATIENT
  Age: 66 Year
  Sex: Male
  Weight: 92.9874 kg

DRUGS (10)
  1. PLAVIX [Concomitant]
  2. BENICAR [Suspect]
     Indication: HYPERTENSION
     Dosage: 40 MG (40 MG, QD), PER ORAL
     Route: 048
     Dates: start: 20020101, end: 20120101
  3. UNSPECIFIED DIURETIC (DIURETICS) [Suspect]
     Indication: HYPERTENSION
     Dosage: PER ORAL
     Route: 048
     Dates: end: 20090101
  4. CRESTOR [Concomitant]
  5. ASPIRIN [Concomitant]
  6. AZOR [Suspect]
     Indication: HYPERTENSION
     Dosage: 5/40MG (QD), PER ORAL; 10/40 MG (QD), PER ORAL
     Route: 048
     Dates: start: 20120101, end: 20120408
  7. AZOR [Suspect]
     Indication: HYPERTENSION
     Dosage: 5/40MG (QD), PER ORAL; 10/40 MG (QD), PER ORAL
     Route: 048
     Dates: start: 20120409
  8. METOPROLOL SUCCINATE [Concomitant]
  9. ALLOPURINOL [Concomitant]
  10. COQ10 (UBIDECARENONE) (UBIDECARENONE) [Concomitant]

REACTIONS (7)
  - CORONARY ARTERY DISEASE [None]
  - OEDEMA PERIPHERAL [None]
  - DEHYDRATION [None]
  - CONDITION AGGRAVATED [None]
  - GOUT [None]
  - BLOOD PRESSURE INADEQUATELY CONTROLLED [None]
  - DIZZINESS [None]
